FAERS Safety Report 5305812-8 (Version None)
Quarter: 2007Q2

REPORT INFORMATION
  Report Type: 
  Country: None (occurrence: None)
  Receive Date: 20070424
  Receipt Date: 20070412
  Transmission Date: 20071010
  Serious: Yes (Other)
  Sender: FDA-Public Use
  Company Number: CA-ELI_LILLY_AND_COMPANY-CA200704000436

PATIENT
  Age: 56 Year
  Sex: Female
  Weight: 62.585 kg

DRUGS (8)
  1. FORTEO [Suspect]
     Indication: OSTEOPOROSIS
     Dosage: 20 UG, DAILY (1/D)
     Route: 058
     Dates: start: 20060812, end: 20070329
  2. FOLIC ACID [Concomitant]
  3. CARBOCAL D [Concomitant]
  4. K-DUR 10 [Concomitant]
  5. TENORMIN [Concomitant]
  6. FENTANYL [Concomitant]
     Dosage: 50 MG, UNK
  7. METHOTREXATE [Concomitant]
  8. MEDROL [Concomitant]

REACTIONS (3)
  - ARTHRALGIA [None]
  - BACK PAIN [None]
  - NEOPLASM [None]
